FAERS Safety Report 10569749 (Version 2)
Quarter: 2014Q4

REPORT INFORMATION
  Report Type: Spontaneous
  Country: FR (occurrence: FR)
  Receive Date: 20141107
  Receipt Date: 20141209
  Transmission Date: 20150529
  Serious: Yes (Death, Hospitalization)
  Sender: FDA-Public Use
  Company Number: FR-ROCHE-1485649

PATIENT
  Age: 56 Year
  Sex: Male
  Weight: 59 kg

DRUGS (14)
  1. PREVISCAN (FRANCE) [Concomitant]
     Active Substance: FLUINDIONE
  2. BACTRIM [Concomitant]
     Active Substance: SULFAMETHOXAZOLE\TRIMETHOPRIM
  3. SYMBICORT [Concomitant]
     Active Substance: BUDESONIDE\FORMOTEROL FUMARATE DIHYDRATE
  4. SOVALDI [Suspect]
     Active Substance: SOFOSBUVIR
     Indication: HEPATITIS C
     Dosage: TO CONTINUE AT LEAST FOR 6 MONTHS
     Route: 048
     Dates: start: 20140207, end: 20140808
  5. DOLIPRANE [Concomitant]
     Active Substance: ACETAMINOPHEN
  6. FORSTEO [Concomitant]
     Active Substance: TERIPARATIDE
  7. TRUVADA [Concomitant]
     Active Substance: EMTRICITABINE\TENOFOVIR DISOPROXIL FUMARATE
  8. SUSTIVA [Concomitant]
     Active Substance: EFAVIRENZ
  9. COPEGUS [Suspect]
     Active Substance: RIBAVIRIN
     Indication: HEPATITIS C
     Dosage: TO CONTINUE AT LEAST FOR 6 MONTHS
     Route: 048
     Dates: start: 20140207, end: 20140808
  10. UVEDOSE [Concomitant]
     Active Substance: CHOLECALCIFEROL
  11. AVLOCARDYL [Concomitant]
     Active Substance: PROPRANOLOL HYDROCHLORIDE
  12. KIVEXA [Concomitant]
     Active Substance: ABACAVIR SULFATE\LAMIVUDINE
  13. ALDACTONE [Concomitant]
     Active Substance: SPIRONOLACTONE
     Route: 065
  14. SPIRIVA [Concomitant]
     Active Substance: TIOTROPIUM BROMIDE MONOHYDRATE

REACTIONS (4)
  - Hepatic encephalopathy [Fatal]
  - Gastrointestinal haemorrhage [Fatal]
  - Hepatic cirrhosis [Fatal]
  - Anaemia macrocytic [Recovering/Resolving]

NARRATIVE: CASE EVENT DATE: 201407
